FAERS Safety Report 4602477-5 (Version None)
Quarter: 2005Q1

REPORT INFORMATION
  Report Type: 
  Country: None (occurrence: None)
  Receive Date: 20050307
  Receipt Date: 20050222
  Transmission Date: 20050727
  Serious: Yes (Hospitalization)
  Sender: FDA-Public Use
  Company Number: 2005035202

PATIENT
  Age: 21 Year
  Sex: Female

DRUGS (11)
  1. ZIPRASIDONE (CAPS) (ZIPRASIDONE) [Suspect]
     Indication: BIPOLAR I DISORDER
     Dosage: 20 MG (20 MG, 1 IN 1 D)
  2. SERTRALINE HCL [Suspect]
     Indication: BIPOLAR I DISORDER
     Dosage: 200 MG (QHS)
  3. LITHIUM CARBONATE [Suspect]
     Indication: BIPOLAR I DISORDER
     Dosage: 1200 MG (QD)
  4. CLONAZEPAM [Suspect]
     Indication: BIPOLAR I DISORDER
     Dosage: 2 MG (QID)
  5. FLUOXETINE [Suspect]
     Indication: BIPOLAR I DISORDER
  6. TOPIRAMATE [Suspect]
     Indication: BIPOLAR I DISORDER
  7. QUETIAPINE FUMARATE [Concomitant]
  8. LAMOTRIGINE [Concomitant]
  9. OXCARBAZEPINE (OXCARBAZEPINE) [Concomitant]
  10. VERAPAMIL [Concomitant]
  11. CITALOPRAM [Concomitant]

REACTIONS (9)
  - BIPOLAR I DISORDER [None]
  - CONDITION AGGRAVATED [None]
  - DRUG INEFFECTIVE [None]
  - DRUG RESISTANCE [None]
  - MANIA [None]
  - PARAESTHESIA [None]
  - SPEECH DISORDER [None]
  - SUICIDAL IDEATION [None]
  - TREATMENT NONCOMPLIANCE [None]
